FAERS Safety Report 17544447 (Version 1)
Quarter: 2020Q1

REPORT INFORMATION
  Report Type: Spontaneous
  Country: FR (occurrence: FR)
  Receive Date: 20200316
  Receipt Date: 20200316
  Transmission Date: 20200409
  Serious: Yes (Death, Hospitalization, Other)
  Sender: FDA-Public Use
  Company Number: FR-SA-2019SA205619

PATIENT
  Age: 73 Year
  Sex: Male
  Weight: 50 kg

DRUGS (3)
  1. JEVTANA [Suspect]
     Active Substance: CABAZITAXEL
     Indication: BONE MARROW INFILTRATION
  2. JEVTANA [Suspect]
     Active Substance: CABAZITAXEL
     Indication: PROSTATE CANCER
     Dosage: 15MG/M2-17.55MG (DOSE AT 75%)
     Route: 042
     Dates: start: 20190620, end: 20190620
  3. PERFALGAN [Concomitant]
     Active Substance: ACETAMINOPHEN
     Indication: PAIN
     Dosage: UNK
     Route: 042
     Dates: start: 20190620, end: 20190620

REACTIONS (9)
  - Diarrhoea haemorrhagic [Fatal]
  - Bacteraemia [Fatal]
  - Urticaria [Fatal]
  - Fall [Fatal]
  - Pyrexia [Fatal]
  - Sepsis [Fatal]
  - Confusional state [Fatal]
  - Hypotension [Fatal]
  - Septic shock [Fatal]

NARRATIVE: CASE EVENT DATE: 20190626
